FAERS Safety Report 9416676 (Version 1)
Quarter: 2013Q3

REPORT INFORMATION
  Report Type: Spontaneous
  Country: DE (occurrence: None)
  Receive Date: 20130719
  Receipt Date: 20130719
  Transmission Date: 20140515
  Serious: Yes (Other)
  Sender: FDA-Public Use
  Company Number: TPG2013A00795

PATIENT
  Age: 78 Year
  Sex: Male

DRUGS (1)
  1. EDARBI [Suspect]
     Indication: ESSENTIAL HYPERTENSION
     Route: 048

REACTIONS (2)
  - Cardiac failure [None]
  - Atrial fibrillation [None]
